FAERS Safety Report 20535446 (Version 1)
Quarter: 2022Q1

REPORT INFORMATION
  Report Type: Spontaneous
  Country: US (occurrence: US)
  Receive Date: 20220302
  Receipt Date: 20220302
  Transmission Date: 20220424
  Serious: No
  Sender: FDA-Public Use
  Company Number: US-SA-SAC20220223000090

PATIENT
  Age: 12 Year
  Sex: Male

DRUGS (1)
  1. DUPIXENT [Suspect]
     Active Substance: DUPILUMAB
     Indication: Asthma
     Dosage: INJECT 2 SYRINGES SUBCUTANEOUSLY ON DAY 1, THEN INJECT 1 SYRINGE ON DAY 15, THEN 1 SYRINGE EVERY OTH
     Route: 058

REACTIONS (4)
  - Wheezing [Unknown]
  - Pruritus [Unknown]
  - Throat tightness [Unknown]
  - Hypersensitivity [Unknown]

NARRATIVE: CASE EVENT DATE: 20220114
